FAERS Safety Report 13802288 (Version 6)
Quarter: 2018Q1

REPORT INFORMATION
  Report Type: Report from Study
  Country: BR (occurrence: BR)
  Receive Date: 20170728
  Receipt Date: 20180228
  Transmission Date: 20180508
  Serious: Yes (Hospitalization, Other)
  Sender: FDA-Public Use
  Company Number: PHHY2017BR110293

PATIENT
  Age: 41 Year
  Sex: Female
  Weight: 68.3 kg

DRUGS (20)
  1. ACLASTA [Suspect]
     Active Substance: ZOLEDRONIC ACID
     Dosage: 1 DF, (5MG/100ML) Q12MO
     Route: 042
     Dates: start: 201306
  2. CAL D [Concomitant]
     Indication: OSTEOPOROSIS
     Dosage: 8 DF, QD
     Route: 048
     Dates: start: 2010
  3. CALCITRIOL. [Concomitant]
     Active Substance: CALCITRIOL
     Indication: OSTEOPOROSIS
     Dosage: 8 DF, QD
     Route: 048
     Dates: start: 2010
  4. PANTOPRAZOLE [Concomitant]
     Active Substance: PANTOPRAZOLE
     Indication: PROPHYLAXIS
     Dosage: 1 DF, QD
     Route: 048
  5. ACLASTA [Suspect]
     Active Substance: ZOLEDRONIC ACID
     Indication: OSTEOPOROSIS
     Dosage: 1 DF, (5MG/100ML) Q12MO
     Route: 042
     Dates: start: 20120228
  6. CALCIUM [Suspect]
     Active Substance: CALCIUM
     Indication: BLOOD CALCIUM DECREASED
     Route: 065
  7. OMEPRAZOLE. [Concomitant]
     Active Substance: OMEPRAZOLE
     Indication: PROPHYLAXIS
     Dosage: 1 DF, QD
     Route: 048
  8. RIVOTRIL [Concomitant]
     Active Substance: CLONAZEPAM
     Indication: STRESS
     Dosage: 1 DF, QD
     Route: 048
     Dates: start: 2012
  9. CYMBALTA [Concomitant]
     Active Substance: DULOXETINE HYDROCHLORIDE
     Indication: DEPRESSION
  10. ACLASTA [Suspect]
     Active Substance: ZOLEDRONIC ACID
     Dosage: 1 DF, (5MG/100ML) Q12MO
     Route: 042
     Dates: start: 2016
  11. RIVOTRIL [Concomitant]
     Active Substance: CLONAZEPAM
     Indication: DEPRESSION
  12. MIOSAN [Concomitant]
     Active Substance: CYCLOBENZAPRINE
     Indication: PAIN
     Dosage: 1 DF, QD SINCE A LOMG TIME AGO
     Route: 048
  13. MELATONIN [Concomitant]
     Active Substance: MELATONIN
     Indication: DEPRESSION
  14. MELATONIN [Concomitant]
     Active Substance: MELATONIN
     Indication: STRESS
     Dosage: 1 DF, QD
     Route: 048
  15. CYMBALTA [Concomitant]
     Active Substance: DULOXETINE HYDROCHLORIDE
     Indication: STRESS
     Dosage: 1 DF, QD FOR 4 YEARS
     Route: 048
  16. PURAN [Concomitant]
     Active Substance: LEVOTHYROXINE SODIUM
     Indication: HORMONE THERAPY
     Dosage: 1 DF, QD
     Route: 048
     Dates: start: 2010
  17. ATORVASTATIN [Concomitant]
     Active Substance: ATORVASTATIN
     Indication: THYROID DISORDER
     Dosage: 1 DF, QD
     Route: 048
  18. ACLASTA [Suspect]
     Active Substance: ZOLEDRONIC ACID
     Dosage: 1 DF, (5MG/100ML) Q12MO
     Route: 042
     Dates: start: 2014
  19. ACLASTA [Suspect]
     Active Substance: ZOLEDRONIC ACID
     Dosage: 1 DF, (5MG/100ML) Q12MO
     Route: 042
     Dates: start: 20150627
  20. MIOCALVEN [Concomitant]
     Indication: OSTEOPOROSIS
     Dosage: 8 DF, QD
     Route: 048
     Dates: start: 2010

REACTIONS (29)
  - Osteopenia [Recovering/Resolving]
  - Cervical vertebral fracture [Unknown]
  - Malignant polyp [Unknown]
  - Depression [Recovering/Resolving]
  - Hepatic enzyme abnormal [Recovering/Resolving]
  - Spinal pain [Not Recovered/Not Resolved]
  - Osteoporosis [Recovering/Resolving]
  - Leiomyoma [Recovering/Resolving]
  - Brain hypoxia [Recovering/Resolving]
  - Tooth loss [Recovering/Resolving]
  - Blood creatinine abnormal [Recovering/Resolving]
  - Nervousness [Recovering/Resolving]
  - Blood calcium decreased [Recovering/Resolving]
  - Haemorrhage [Recovering/Resolving]
  - Syncope [Recovering/Resolving]
  - Renal disorder [Recovering/Resolving]
  - Coeliac disease [Unknown]
  - Abdominal pain [Not Recovered/Not Resolved]
  - Cardiac disorder [Recovering/Resolving]
  - Jaw fracture [Recovering/Resolving]
  - Concomitant disease aggravated [Unknown]
  - Ulcer [Unknown]
  - Pulpitis dental [Recovering/Resolving]
  - Stress [Recovering/Resolving]
  - Lumbar vertebral fracture [Recovering/Resolving]
  - Fall [Unknown]
  - Endometriosis [Recovering/Resolving]
  - Blood test abnormal [Recovering/Resolving]
  - Dehydration [Unknown]

NARRATIVE: CASE EVENT DATE: 2012
